FAERS Safety Report 8059481-7 (Version None)
Quarter: 2012Q1

REPORT INFORMATION
  Report Type: 
  Country: None (occurrence: None)
  Receive Date: 20120119
  Receipt Date: 20120119
  Transmission Date: 20120608
  Serious: Yes (Hospitalization)
  Sender: FDA-Public Use
  Company Number: None

PATIENT
  Age: 36 Year
  Sex: Male
  Weight: 89.2679 kg

DRUGS (10)
  1. TEMOZOLOMIDE [Suspect]
     Indication: GLIOBLASTOMA
     Dosage: 405 MG PO QD
     Route: 048
     Dates: start: 20110706
  2. DEXAMETHASONE TAB [Concomitant]
  3. LEVETIRACETAM [Concomitant]
  4. LORAZEPAM [Concomitant]
  5. COLACE [Concomitant]
  6. TURMERIC [Concomitant]
  7. CALCIUM + D [Concomitant]
  8. TRIMETHOPRIM + SULFAMETHOXAZOLE [Concomitant]
  9. FISH OIL CAPSULE [Concomitant]
  10. ONDANSETRON HYDROCHLORIDE [Concomitant]

REACTIONS (2)
  - APHASIA [None]
  - CONVULSION [None]
